FAERS Safety Report 7266657-5 (Version None)
Quarter: 2011Q1

REPORT INFORMATION
  Report Type: 
  Country: None (occurrence: None)
  Receive Date: 20110201
  Receipt Date: 20110120
  Transmission Date: 20110831
  Serious: Yes (Hospitalization, Other)
  Sender: FDA-Public Use
  Company Number: US-BIOGENIDEC-2008BI032863

PATIENT
  Age: 63 Year
  Sex: Female
  Weight: 34 kg

DRUGS (14)
  1. TYSABRI [Suspect]
     Indication: MULTIPLE SCLEROSIS
     Route: 042
     Dates: start: 20080825
  2. PHENOBARBITAL [Concomitant]
     Route: 048
  3. FLECTOR [Concomitant]
  4. DILAUDID [Concomitant]
     Route: 048
  5. ZANAFLEX [Concomitant]
  6. ZONEGRAN [Concomitant]
  7. LEVOXYL [Concomitant]
     Route: 048
  8. LIDODERM [Concomitant]
  9. MOBIC [Concomitant]
     Route: 048
  10. PROVIGIL [Concomitant]
     Route: 048
  11. KEPPRA [Concomitant]
     Route: 048
  12. VITAMIN D [Concomitant]
     Route: 048
  13. DURAGESIC-50 [Concomitant]
  14. FIORICET [Concomitant]

REACTIONS (14)
  - SPONDYLOLISTHESIS [None]
  - WEIGHT DECREASED [None]
  - CLOSTRIDIAL INFECTION [None]
  - FALL [None]
  - SOMNOLENCE [None]
  - MUSCLE SPASMS [None]
  - INTESTINAL PROLAPSE [None]
  - RIB FRACTURE [None]
  - MUSCULOSKELETAL CHEST PAIN [None]
  - CONVULSION [None]
  - FATIGUE [None]
  - FREQUENT BOWEL MOVEMENTS [None]
  - PAIN [None]
  - URINARY TRACT INFECTION [None]
